FAERS Safety Report 18446008 (Version 1)
Quarter: 2020Q4

REPORT INFORMATION
  Report Type: Spontaneous
  Country: US (occurrence: US)
  Receive Date: 20201030
  Receipt Date: 20201030
  Transmission Date: 20210114
  Serious: Yes (Other)
  Sender: FDA-Public Use
  Company Number: US-PFIZER INC-2020420646

PATIENT
  Age: 72 Year
  Sex: Female
  Weight: 83.91 kg

DRUGS (1)
  1. XELJANZ XR [Suspect]
     Active Substance: TOFACITINIB CITRATE
     Indication: RHEUMATOID ARTHRITIS
     Dosage: 11 MG, 1X/DAY (AT NIGHT TIME)
     Route: 048
     Dates: start: 202004, end: 2020

REACTIONS (4)
  - Oxygen saturation decreased [Unknown]
  - Dyspnoea [Recovering/Resolving]
  - Condition aggravated [Unknown]
  - Chronic respiratory disease [Unknown]

NARRATIVE: CASE EVENT DATE: 202005
